FAERS Safety Report 7776909 (Version 3)
Quarter: 2014Q1

REPORT INFORMATION
  Report Type: Spontaneous
  Country: US (occurrence: US)
  Receive Date: 20110127
  Receipt Date: 20140207
  Transmission Date: 20141002
  Serious: Yes (Other)
  Sender: FDA-Public Use
  Company Number: US-BAYER-2011-007849

PATIENT
  Age: 29 Year
  Sex: Female

DRUGS (1)
  1. MIRENA [Suspect]
     Dosage: 20 ?G/D, CONT
     Route: 015
     Dates: start: 20080908, end: 20110125

REACTIONS (6)
  - Device dislocation [Recovered/Resolved]
  - Device dislocation [Recovered/Resolved]
  - Pain [Recovered/Resolved]
  - Discomfort [Recovered/Resolved]
  - Injury [Recovered/Resolved]
  - Fatigue [Unknown]
